FAERS Safety Report 18896308 (Version 2)
Quarter: 2022Q1

REPORT INFORMATION
  Report Type: Spontaneous
  Country: US (occurrence: US)
  Receive Date: 20210215
  Receipt Date: 20220311
  Transmission Date: 20220423
  Serious: Yes (Hospitalization, Other)
  Sender: FDA-Public Use
  Company Number: US-PFIZER INC-2018477401

PATIENT
  Age: 75 Year
  Sex: Male

DRUGS (2)
  1. IBRANCE [Suspect]
     Active Substance: PALBOCICLIB
     Indication: Breast cancer male
     Dosage: 125 MG, UNK
  2. IBRANCE [Suspect]
     Active Substance: PALBOCICLIB
     Dosage: 125 MG, 1X/DAY (TAKE 1 CAPSULE DAILY FOR 21 DAYS)
     Dates: start: 2018

REACTIONS (6)
  - Pain [Unknown]
  - Blood creatinine decreased [Unknown]
  - Wound [Unknown]
  - Urinary tract infection [Unknown]
  - Nail disorder [Unknown]
  - Metastases to lymph nodes [Unknown]

NARRATIVE: CASE EVENT DATE: 20220101
